FAERS Safety Report 6055612-9 (Version None)
Quarter: 2009Q1

REPORT INFORMATION
  Report Type: 
  Country: None (occurrence: None)
  Receive Date: 20090128
  Receipt Date: 20090115
  Transmission Date: 20090719
  Serious: Yes (Hospitalization)
  Sender: FDA-Public Use
  Company Number: FR-JNJFOC-20090106641

PATIENT
  Sex: Male

DRUGS (8)
  1. TOPALGIC L.P [Suspect]
     Indication: ANALGESIA
     Dosage: DEC-2008
     Route: 048
  2. TEMESTA [Suspect]
     Indication: ANXIETY
     Route: 048
  3. XATRAL [Concomitant]
  4. CALCIPARINE [Concomitant]
  5. INIPOMP [Concomitant]
  6. PREVISCAN [Concomitant]
  7. ACETAMINOPHEN [Concomitant]
  8. TEMERIT [Concomitant]

REACTIONS (4)
  - ACUTE RESPIRATORY DISTRESS SYNDROME [None]
  - COMA [None]
  - DRUG TOXICITY [None]
  - MIOSIS [None]
